FAERS Safety Report 7594832-9 (Version None)
Quarter: 2011Q3

REPORT INFORMATION
  Report Type: 
  Country: None (occurrence: None)
  Receive Date: 20110707
  Receipt Date: 20110627
  Transmission Date: 20111222
  Serious: Yes (Hospitalization, Other)
  Sender: FDA-Public Use
  Company Number: US-ELI_LILLY_AND_COMPANY-US201105004244

PATIENT
  Sex: Female
  Weight: 136.5 kg

DRUGS (20)
  1. TOPAMAX [Concomitant]
     Dosage: 75 MG, QD
     Route: 048
  2. WELLBUTRIN [Concomitant]
     Dosage: 150 MG, BID
     Route: 048
  3. COSOPT [Concomitant]
     Dosage: UNK, BID
  4. CYMBALTA [Concomitant]
     Dosage: 60 MG, QD
     Route: 048
  5. PRAVACHOL [Concomitant]
     Dosage: 75 MG, QD
     Route: 048
  6. AMBIEN [Concomitant]
     Dosage: 5 MG, EACH EVENING
     Route: 048
  7. ACE INHIBITORS [Concomitant]
     Dosage: UNK
  8. ASCORBIC ACID [Concomitant]
     Dosage: 500 MG, QD
  9. BYETTA [Suspect]
     Indication: TYPE 2 DIABETES MELLITUS
     Dosage: 5 UG, BID
     Route: 058
     Dates: start: 20100423, end: 20100528
  10. ALPHAGAN [Concomitant]
     Dosage: UNK, BID
  11. CELLCEPT [Concomitant]
     Dosage: 500 G, BID
     Route: 048
  12. NEVANAC [Concomitant]
     Dosage: UNK, QD
  13. BYETTA [Suspect]
     Dosage: 10 UG, BID
     Route: 058
     Dates: start: 20100528, end: 20110510
  14. NEURONTIN [Concomitant]
     Dosage: 900 MG, TID
     Route: 048
  15. ZESTRIL [Concomitant]
     Dosage: 20 MG, QD
     Route: 048
  16. ADDERALL 10 [Concomitant]
     Dosage: 20 MG, QD
     Route: 048
  17. CELEXA [Concomitant]
     Dosage: 40 MG, QD
     Route: 048
  18. ACTOS [Concomitant]
     Dosage: 30 MG, QD
     Route: 048
  19. BALANCED B-50 [Concomitant]
     Dosage: UNK, QD
     Route: 048
  20. GLUMETZA [Concomitant]
     Dosage: 2000 MG, BID
     Route: 048

REACTIONS (3)
  - CHOLELITHIASIS [None]
  - PANCREATITIS [None]
  - WEIGHT DECREASED [None]
